FAERS Safety Report 16211585 (Version 15)
Quarter: 2020Q4

REPORT INFORMATION
  Report Type: Report from Study
  Country: CA (occurrence: CA)
  Receive Date: 20190418
  Receipt Date: 20201026
  Transmission Date: 20210113
  Serious: Yes (Life-Threatening, Hospitalization, Other)
  Sender: FDA-Public Use
  Company Number: CA-SAKK-2018SA318245AA

PATIENT

DRUGS (7)
  1. ALEMTUZUMAB [Suspect]
     Active Substance: ALEMTUZUMAB
     Indication: RELAPSING-REMITTING MULTIPLE SCLEROSIS
     Dosage: 12 MG, QD
     Route: 041
     Dates: start: 20181113, end: 20181115
  2. REACTINE [CETIRIZINE HYDROCHLORIDE] [Concomitant]
     Active Substance: CETIRIZINE HYDROCHLORIDE
     Indication: PREMEDICATION
     Dosage: 10 MG, BID
     Route: 048
     Dates: start: 20181113, end: 20181115
  3. ACYCLOVIR [ACICLOVIR] [Concomitant]
     Active Substance: ACYCLOVIR
     Indication: PREMEDICATION
     Dosage: 200 MG, BID
     Route: 048
     Dates: start: 20181113
  4. TYLENOL [Concomitant]
     Active Substance: ACETAMINOPHEN
     Indication: PREMEDICATION
     Dosage: 975 MG, PRN
     Route: 048
     Dates: start: 20181113
  5. METHYLPREDNISOLONE. [Concomitant]
     Active Substance: METHYLPREDNISOLONE
     Indication: PREMEDICATION
     Dosage: 1 G, UNK
     Route: 042
     Dates: start: 20181113, end: 20181115
  6. TYLENOL [Concomitant]
     Active Substance: ACETAMINOPHEN
     Dosage: 500 MG, PRN
     Route: 048
  7. RANITIDINE. [Concomitant]
     Active Substance: RANITIDINE
     Indication: PREMEDICATION
     Dosage: 150 MG, BID
     Route: 048
     Dates: start: 20181113, end: 20181115

REACTIONS (26)
  - Immune thrombocytopenia [Unknown]
  - Platelet count decreased [Recovered/Resolved]
  - Multiple sclerosis [Unknown]
  - Pigmentation disorder [Not Recovered/Not Resolved]
  - Red cell distribution width increased [Recovered/Resolved]
  - Urine ketone body present [Recovered/Resolved]
  - Urine abnormality [Recovered/Resolved]
  - Flushing [Recovered/Resolved]
  - Wheezing [Recovered/Resolved]
  - Red blood cells urine positive [Recovered/Resolved]
  - Drug exposure before pregnancy [Unknown]
  - Foetal damage [Unknown]
  - Red cell distribution width decreased [Recovered/Resolved]
  - Haemoglobin decreased [Recovered/Resolved]
  - Chest discomfort [Recovered/Resolved]
  - White blood cell count decreased [Recovered/Resolved]
  - Feeling abnormal [Recovered/Resolved]
  - Foetal growth restriction [Recovered/Resolved]
  - Pain [Recovered/Resolved]
  - Lymphocyte count decreased [Not Recovered/Not Resolved]
  - Blood urine present [Not Recovered/Not Resolved]
  - Haematocrit increased [Recovered/Resolved]
  - White blood cells urine positive [Recovered/Resolved]
  - Haemoglobin urine present [Not Recovered/Not Resolved]
  - Red blood cell count decreased [Recovered/Resolved]
  - Influenza [Not Recovered/Not Resolved]

NARRATIVE: CASE EVENT DATE: 20181113
